FAERS Safety Report 18447328 (Version 1)
Quarter: 2020Q4

REPORT INFORMATION
  Report Type: Spontaneous
  Country: CN (occurrence: CN)
  Receive Date: 20201030
  Receipt Date: 20201030
  Transmission Date: 20210114
  Serious: Yes (Other)
  Sender: FDA-Public Use
  Company Number: CN-JNJFOC-20201036023

PATIENT

DRUGS (6)
  1. TOPIRAMATE. [Interacting]
     Active Substance: TOPIRAMATE
     Indication: BIPOLAR DISORDER
  2. VALPROIC ACID. [Interacting]
     Active Substance: VALPROIC ACID
     Indication: PRODUCT USED FOR UNKNOWN INDICATION
     Route: 065
  3. TOPIRAMATE. [Interacting]
     Active Substance: TOPIRAMATE
     Indication: DEPRESSION
  4. PHENOBARBITAL. [Interacting]
     Active Substance: PHENOBARBITAL
     Indication: PRODUCT USED FOR UNKNOWN INDICATION
     Route: 065
  5. TOPIRAMATE. [Interacting]
     Active Substance: TOPIRAMATE
     Indication: MIGRAINE
  6. TOPIRAMATE. [Suspect]
     Active Substance: TOPIRAMATE
     Indication: EPILEPSY
     Route: 065

REACTIONS (12)
  - Hypersomnia [Recovered/Resolved with Sequelae]
  - Clonus [Recovering/Resolving]
  - Ataxia [Recovering/Resolving]
  - Hemiplegia [Recovering/Resolving]
  - Coma [Recovered/Resolved with Sequelae]
  - Drug interaction [Unknown]
  - Somnambulism [Recovering/Resolving]
  - Off label use [Unknown]
  - Hyperammonaemic encephalopathy [Recovered/Resolved]
  - Encephalopathy [Recovering/Resolving]
  - Cognitive disorder [Recovered/Resolved]
  - Product use in unapproved indication [Unknown]
